FAERS Safety Report 12759431 (Version 3)
Quarter: 2019Q4

REPORT INFORMATION
  Report Type: Spontaneous
  Country: HU (occurrence: HU)
  Receive Date: 20160919
  Receipt Date: 20191127
  Transmission Date: 20200122
  Serious: Yes (Other)
  Sender: FDA-Public Use
  Company Number: HU-TEVA-691795ISR

PATIENT
  Age: 29 Year
  Sex: Female

DRUGS (1)
  1. AMOXICILLIN. [Suspect]
     Active Substance: AMOXICILLIN
     Indication: PYELONEPHRITIS
     Route: 065

REACTIONS (3)
  - Endocarditis [Unknown]
  - Pneumonia [Unknown]
  - Maternal exposure during pregnancy [Unknown]
